FAERS Safety Report 18762585 (Version 1)
Quarter: 2021Q1

REPORT INFORMATION
  Report Type: Spontaneous
  Country: US (occurrence: US)
  Receive Date: 20210119
  Receipt Date: 20210119
  Transmission Date: 20210419
  Serious: Yes (Other)
  Sender: FDA-Public Use
  Company Number: None

PATIENT
  Sex: Female
  Weight: 76.5 kg

DRUGS (3)
  1. EQUATE OMEPRAZOLE DELAYED RELEASE ACID REDUCER [Suspect]
     Active Substance: OMEPRAZOLE
     Indication: GASTROOESOPHAGEAL REFLUX DISEASE
     Dosage: ?          QUANTITY:1 TABLET(S);?
     Route: 048
  2. BROMOCRIPTINE [Concomitant]
     Active Substance: BROMOCRIPTINE
  3. PROPRANOLOL [Concomitant]
     Active Substance: PROPRANOLOL HYDROCHLORIDE

REACTIONS (9)
  - Muscle spasms [None]
  - Total lung capacity decreased [None]
  - Dizziness [None]
  - Fatigue [None]
  - Physical product label issue [None]
  - Dyspnoea [None]
  - Nausea [None]
  - Anaphylactic shock [None]
  - Paranasal sinus inflammation [None]

NARRATIVE: CASE EVENT DATE: 20210119
